FAERS Safety Report 15254872 (Version 1)
Quarter: 2018Q3

REPORT INFORMATION
  Report Type: Report from Study
  Country: JP (occurrence: JP)
  Receive Date: 20180808
  Receipt Date: 20180808
  Transmission Date: 20181010
  Serious: Yes (Other)
  Sender: FDA-Public Use
  Company Number: JP-TEVA-2018-JP-938367

PATIENT
  Age: 18 Year
  Sex: Male

DRUGS (3)
  1. CARBOPLATIN. [Suspect]
     Active Substance: CARBOPLATIN
     Indication: CNS GERMINOMA
     Dosage: FROM DAY ?8 TO ?6; RECEIVED 1 CYCLE OF MELPHALAN ETOPOSIDE AND CARBOPLATIN.
     Route: 065
  2. MELPHALAN. [Suspect]
     Active Substance: MELPHALAN
     Indication: CNS GERMINOMA
     Dosage: FROM DAY ?4 TO ?3; RECEIVED 1 CYCLE OF MELPHALAN ETOPOSIDE AND CARBOPLATIN.
     Route: 065
  3. ETOPOSIDE. [Suspect]
     Active Substance: ETOPOSIDE
     Indication: CNS GERMINOMA
     Dosage: FROM DAY ?8 TO ?5; RECEIVED 1 CYCLE OF MELPHALAN ETOPOSIDE AND CARBOPLATIN.
     Route: 065

REACTIONS (1)
  - Hypokalaemia [Unknown]
